FAERS Safety Report 10339640 (Version 2)
Quarter: 2014Q1

REPORT INFORMATION
  Report Type: Spontaneous
  Country: US (occurrence: None)
  Receive Date: 20120817
  Receipt Date: 20130815
  Transmission Date: 20141002
  Serious: Yes (Other)
  Sender: FDA-Public Use
  Company Number: ADR-2012-00437

PATIENT
  Sex: Female

DRUGS (3)
  1. LIORESAL INTRATHECAL (BALCOFEN INJECTION) 1500 MCG/ML [Suspect]
     Indication: MUSCLE SPASTICITY
  2. LIORESAL INTRATHECAL (BALCOFEN INJECTION) 1500 MCG/ML [Suspect]
     Indication: SPINAL CORD INJURY
  3. MORPHINE [Concomitant]

REACTIONS (7)
  - No therapeutic response [None]
  - Altered state of consciousness [None]
  - Pain [None]
  - Sudden onset of sleep [None]
  - Somnolence [None]
  - Muscle spasticity [None]
  - Hypotonia [None]
